APPROVED DRUG PRODUCT: AMILORIDE HYDROCHLORIDE AND HYDROCHLOROTHIAZIDE
Active Ingredient: AMILORIDE HYDROCHLORIDE; HYDROCHLOROTHIAZIDE
Strength: EQ 5MG ANHYDROUS;50MG
Dosage Form/Route: TABLET;ORAL
Application: A073209 | Product #001 | TE Code: AB
Applicant: RISING PHARMA HOLDING INC
Approved: Oct 31, 1991 | RLD: No | RS: Yes | Type: RX